FAERS Safety Report 4970810-0 (Version None)
Quarter: 2006Q2

REPORT INFORMATION
  Report Type: 
  Country: None (occurrence: None)
  Receive Date: 20060412
  Receipt Date: 20060331
  Transmission Date: 20061013
  Serious: Yes (Hospitalization)
  Sender: FDA-Public Use
  Company Number: DE-ROCHE-442528

PATIENT
  Age: 32 Year
  Sex: Male

DRUGS (9)
  1. MYCOPHENOLATE MOFETIL [Suspect]
     Indication: IMMUNOSUPPRESSION
     Dosage: INITIAL THERAPY BEFORE PV + : 2 X 1 GRAM. THERAPY AT TIME OF PV+ : 2 X 1 GRAM.
     Route: 065
  2. STEROIDS NOS [Suspect]
     Indication: IMMUNOSUPPRESSION
     Dosage: THERAPY BEFORE PV+.
     Route: 065
  3. STEROIDS NOS [Suspect]
     Dosage: THERAPY WHEN PV+
     Route: 065
  4. STEROIDS NOS [Suspect]
     Dosage: THERAPY AFTER PV+
     Route: 065
  5. CYA [Suspect]
     Indication: IMMUNOSUPPRESSION
     Dosage: THERAPY BEFORE PV+ :- }200 NG/ML AT TIME POINT OF BIOPSY.
     Route: 065
  6. CYA [Suspect]
     Dosage: THERAPY AFTER PV+: AT TIME POINT OF BIOPSY 75 NG/ML.
     Route: 065
  7. SIMULECT [Suspect]
     Indication: IMMUNOSUPPRESSION
     Dosage: THERAPY BEFORE PV+
     Route: 065
  8. TACROLIMUS [Suspect]
     Indication: IMMUNOSUPPRESSION
     Dosage: THERAPY AT TIME OF PV+: }9 NG/ML.
     Route: 065
  9. AZA [Suspect]
     Indication: IMMUNOSUPPRESSION
     Dosage: THERAPY AFTER PV+
     Route: 065

REACTIONS (3)
  - INFECTION [None]
  - KIDNEY TRANSPLANT REJECTION [None]
  - NEPHROPATHY [None]
